FAERS Safety Report 8943850 (Version 1)
Quarter: 2012Q4

REPORT INFORMATION
  Report Type: 
  Country: US (occurrence: US)
  Receive Date: 20121204
  Receipt Date: 20121204
  Transmission Date: 20130627
  Serious: No
  Sender: FDA-Public Use
  Company Number: US-B.I. PHARMACEUTICALS,INC./RIDGEFIELD-2012-BI-01645BP

PATIENT
  Age: 82 Year
  Sex: Female

DRUGS (5)
  1. PRADAXA [Suspect]
     Indication: ATRIAL FIBRILLATION
     Dates: start: 201210
  2. PRADAXA [Suspect]
     Indication: EXTRASYSTOLES
  3. DRONEDARONE [Suspect]
     Indication: ATRIAL FIBRILLATION
     Dosage: 800 mg
     Route: 048
     Dates: start: 201210
  4. DRONEDARONE [Suspect]
     Indication: EXTRASYSTOLES
  5. ATENOLOL [Concomitant]

REACTIONS (3)
  - Extrasystoles [Not Recovered/Not Resolved]
  - Emotional disorder [Unknown]
  - Feeling abnormal [Unknown]
